FAERS Safety Report 5291373-9 (Version None)
Quarter: 2007Q2

REPORT INFORMATION
  Report Type: 
  Country: None (occurrence: None)
  Receive Date: 20070402
  Receipt Date: 20070322
  Transmission Date: 20071010
  Serious: Yes (Hospitalization)
  Sender: FDA-Public Use
  Company Number: 237604

PATIENT
  Age: 65 Year
  Sex: Male

DRUGS (7)
  1. MABTHERA (RITUXIMAB) CONC FOR SOLUTION FOR INFUSION [Suspect]
     Indication: RHEUMATOID ARTHRITIS
     Dates: start: 20030101
  2. SELOKEN ZOC (METOPROLOL SUCCINATE) [Concomitant]
  3. METHOTREXATE [Concomitant]
  4. PRAVACHOL [Concomitant]
  5. CONFORTID (INDOMETHACIN) [Concomitant]
  6. ASPIRIN [Concomitant]
  7. ACETYLCYSTEINE [Concomitant]

REACTIONS (6)
  - BRAIN SCAN ABNORMAL [None]
  - FACIAL PALSY [None]
  - MONOPARESIS [None]
  - MUSCULAR WEAKNESS [None]
  - SCAR [None]
  - SPEECH DISORDER [None]
